FAERS Safety Report 7406953-1 (Version None)
Quarter: 2011Q2

REPORT INFORMATION
  Report Type: 
  Country: None (occurrence: None)
  Receive Date: 20110411
  Receipt Date: 20110406
  Transmission Date: 20111010
  Serious: No
  Sender: FDA-Public Use
  Company Number: US-PFIZER INC-2010126284

PATIENT
  Sex: Male
  Weight: 115 kg

DRUGS (2)
  1. PERCOCET [Concomitant]
     Indication: PAIN
     Dosage: 5 MG, 4X/DAY
  2. CHANTIX [Suspect]
     Indication: SMOKING CESSATION THERAPY
     Dosage: 0.5 MG, 1X/DAY
     Route: 048
     Dates: start: 20080101, end: 20080101

REACTIONS (2)
  - NIGHTMARE [None]
  - ABNORMAL DREAMS [None]
